FAERS Safety Report 5955624-7 (Version None)
Quarter: 2008Q4

REPORT INFORMATION
  Report Type: 
  Country: None (occurrence: None)
  Receive Date: 20081117
  Receipt Date: 20081112
  Transmission Date: 20090506
  Serious: Yes (Hospitalization)
  Sender: FDA-Public Use
  Company Number: FR-RB-006190-08

PATIENT
  Age: 24 Year
  Sex: Female

DRUGS (1)
  1. SUBUTEX [Suspect]
     Indication: DRUG USE FOR UNKNOWN INDICATION
     Route: 060

REACTIONS (4)
  - ANXIETY [None]
  - HOSPITALISATION [None]
  - RESPIRATORY DISORDER [None]
  - TENSION [None]
